FAERS Safety Report 5469848-9 (Version None)
Quarter: 2007Q3

REPORT INFORMATION
  Report Type: 
  Country: None (occurrence: None)
  Receive Date: 20070927
  Receipt Date: 20070820
  Transmission Date: 20080115
  Serious: Yes (Hospitalization)
  Sender: FDA-Public Use
  Company Number: US-BRISTOL-MYERS SQUIBB COMPANY-13883723

PATIENT

DRUGS (1)
  1. SPRYCEL [Suspect]
     Dosage: INITIALLY IT WAS 70 BID.

REACTIONS (3)
  - BONE PAIN [None]
  - DIARRHOEA [None]
  - PLEURAL EFFUSION [None]
